FAERS Safety Report 21516945 (Version 2)
Quarter: 2022Q4

REPORT INFORMATION
  Report Type: Other
  Country: US (occurrence: None)
  Receive Date: 20221028
  Receipt Date: 20221221
  Transmission Date: 20230113
  Serious: Yes (Hospitalization)
  Sender: FDA-Public Use
  Company Number: US-ROCHE-3203665

PATIENT
  Age: 57 Year
  Sex: Female
  Weight: 104.87 kg

DRUGS (28)
  1. OCREVUS [Suspect]
     Active Substance: OCRELIZUMAB
     Indication: Multiple sclerosis
     Dosage: YES, INFUSE 600MG INTRAVENOUSLY EVERY 6 MONTH(S), (STRENGTH: 30 MG/ML)
     Route: 042
  2. FIORICET [Concomitant]
     Active Substance: ACETAMINOPHEN\BUTALBITAL\CAFFEINE
  3. PERCOCET [Concomitant]
     Active Substance: ACETAMINOPHEN\OXYCODONE HYDROCHLORIDE
  4. NAMENDA [Concomitant]
     Active Substance: MEMANTINE HYDROCHLORIDE
  5. REQUIP [Concomitant]
     Active Substance: ROPINIROLE HYDROCHLORIDE
  6. BUTRANS [Concomitant]
     Active Substance: BUPRENORPHINE
  7. ROBAXIN [Concomitant]
     Active Substance: METHOCARBAMOL
  8. AUGMENTIN [Concomitant]
     Active Substance: AMOXICILLIN\CLAVULANATE POTASSIUM
  9. MEDROL [Concomitant]
     Active Substance: METHYLPREDNISOLONE
  10. VITAMIN B6 [Concomitant]
     Active Substance: PYRIDOXINE HYDROCHLORIDE
  11. BACLOFEN [Concomitant]
     Active Substance: BACLOFEN
  12. LIDOCAINE [Concomitant]
     Active Substance: LIDOCAINE
  13. PREDNISONE [Concomitant]
     Active Substance: PREDNISONE
  14. PAXIL [Concomitant]
     Active Substance: PAROXETINE HYDROCHLORIDE
  15. BUTALBITAL, ACETAMINOPHEN, AND CAFFEINE [Concomitant]
     Active Substance: ACETAMINOPHEN\BUTALBITAL\CAFFEINE
  16. ALBUTEROL [Concomitant]
     Active Substance: ALBUTEROL
  17. FOLIC ACID [Concomitant]
     Active Substance: FOLIC ACID
  18. ROPINIROLE [Concomitant]
     Active Substance: ROPINIROLE
  19. FLONASE [Concomitant]
     Active Substance: FLUTICASONE PROPIONATE
  20. VERAPAMIL [Concomitant]
     Active Substance: VERAPAMIL HYDROCHLORIDE
  21. VITAMIN D3 [Concomitant]
     Active Substance: CHOLECALCIFEROL
  22. TOPIRAMATE [Concomitant]
     Active Substance: TOPIRAMATE
  23. ATIVAN [Concomitant]
     Active Substance: LORAZEPAM
  24. GABAPENTIN [Concomitant]
     Active Substance: GABAPENTIN
  25. ASPIRIN [Concomitant]
     Active Substance: ASPIRIN
  26. SINGULAIR [Concomitant]
     Active Substance: MONTELUKAST SODIUM
  27. HYDROCHLOROTHIAZIDE [Concomitant]
     Active Substance: HYDROCHLOROTHIAZIDE
  28. MEMANTINE [Concomitant]
     Active Substance: MEMANTINE

REACTIONS (18)
  - Pneumonia viral [Unknown]
  - Polyneuropathy [Not Recovered/Not Resolved]
  - Vitamin B6 deficiency [Not Recovered/Not Resolved]
  - Incontinence [Not Recovered/Not Resolved]
  - Vision blurred [Not Recovered/Not Resolved]
  - Neck pain [Not Recovered/Not Resolved]
  - Paraesthesia [Not Recovered/Not Resolved]
  - Back disorder [Not Recovered/Not Resolved]
  - Spinal osteoarthritis [Not Recovered/Not Resolved]
  - Intervertebral disc displacement [Not Recovered/Not Resolved]
  - Post-traumatic stress disorder [Not Recovered/Not Resolved]
  - Depression [Not Recovered/Not Resolved]
  - Intervertebral disc degeneration [Not Recovered/Not Resolved]
  - Hyperglycaemia [Not Recovered/Not Resolved]
  - Arthritis [Not Recovered/Not Resolved]
  - Cognitive disorder [Not Recovered/Not Resolved]
  - Back pain [Not Recovered/Not Resolved]
  - Spinal osteoarthritis [Not Recovered/Not Resolved]

NARRATIVE: CASE EVENT DATE: 20180829
